FAERS Safety Report 5531361-8 (Version None)
Quarter: 2007Q4

REPORT INFORMATION
  Report Type: 
  Country: None (occurrence: None)
  Receive Date: 20071127
  Receipt Date: 20071116
  Transmission Date: 20080405
  Serious: Yes (Life-Threatening)
  Sender: FDA-Public Use
  Company Number: TCI2007A06290

PATIENT
  Age: 66 Year
  Sex: Male

DRUGS (8)
  1. ACTOS [Suspect]
     Indication: TYPE 2 DIABETES MELLITUS
     Dosage: 15 MG (15 MG, 1 D) PER ORAL
     Route: 048
     Dates: start: 20070313, end: 20070704
  2. PANALDINE (TICLOPIDINE HYDROCHLORIDE) [Concomitant]
  3. BAYMYCARD (NISOLDIPINE) [Concomitant]
  4. ULGUT (BENEXATE HYDROCHLORIDE BETADEX) [Concomitant]
  5. ISOSORBIDE MONONITRATE [Concomitant]
  6. GLIMICRON (GLICLAZIDE) [Concomitant]
  7. RIZE (CLOTIAZEPAM) [Concomitant]
  8. SERMION (NICERGOLINE) [Concomitant]

REACTIONS (1)
  - MYELODYSPLASTIC SYNDROME [None]
